FAERS Safety Report 19240974 (Version 1)
Quarter: 2021Q2

REPORT INFORMATION
  Report Type: Spontaneous
  Country: US (occurrence: US)
  Receive Date: 20210510
  Receipt Date: 20210510
  Transmission Date: 20210717
  Serious: No
  Sender: FDA-Public Use
  Company Number: None

PATIENT
  Age: 62 Year
  Sex: Female

DRUGS (16)
  1. FIBER [Concomitant]
     Active Substance: PSYLLIUM HUSK
  2. GABAPENTIN. [Concomitant]
     Active Substance: GABAPENTIN
  3. BIOTIN EXTRA STRENGTH [Concomitant]
  4. COLACE [Concomitant]
     Active Substance: DOCUSATE SODIUM
  5. POTASSIUM CHLORIDE ER [Concomitant]
     Active Substance: POTASSIUM CHLORIDE
  6. TYLENOL WITH CODEINE [Concomitant]
     Active Substance: ACETAMINOPHEN\CODEINE PHOSPHATE
  7. AFINITOR [Suspect]
     Active Substance: EVEROLIMUS
     Route: 048
  8. DEXAMETHASONE 0.5 MG/5 ML ORAL [Concomitant]
  9. KLOR?CON M10 [Concomitant]
     Active Substance: POTASSIUM CHLORIDE
  10. PERCOCET [Concomitant]
     Active Substance: ACETAMINOPHEN\OXYCODONE HYDROCHLORIDE
  11. LEVEMIR [Concomitant]
     Active Substance: INSULIN DETEMIR
  12. GLIMEPIRIDE. [Concomitant]
     Active Substance: GLIMEPIRIDE
  13. LIDOCAINE?PRILOCAINE [Concomitant]
     Active Substance: LIDOCAINE\PRILOCAINE
  14. ASPIRIN 81 [Concomitant]
     Active Substance: ASPIRIN
  15. COMPLEX B?100 [Concomitant]
  16. LEVOTHYROXINE SODIUM. [Concomitant]
     Active Substance: LEVOTHYROXINE SODIUM

REACTIONS (1)
  - Disease progression [None]

NARRATIVE: CASE EVENT DATE: 20210510
